FAERS Safety Report 5621851-1 (Version None)
Quarter: 2008Q1

REPORT INFORMATION
  Report Type: 
  Country: None (occurrence: None)
  Receive Date: 20080211
  Receipt Date: 20071213
  Transmission Date: 20080703
  Serious: No
  Sender: FDA-Public Use
  Company Number: US-BRISTOL-MYERS SQUIBB COMPANY-13971619

PATIENT
  Age: 51 Year
  Sex: Female

DRUGS (1)
  1. IXEMPRA [Suspect]
     Indication: BREAST CANCER METASTATIC
     Dosage: 1 INFUSION IS GIVEN.
     Route: 042
     Dates: start: 20071101, end: 20071101

REACTIONS (2)
  - DYSPHAGIA [None]
  - DYSPHASIA [None]
